FAERS Safety Report 16208739 (Version 16)
Quarter: 2020Q2

REPORT INFORMATION
  Report Type: Report from Study
  Country: NL (occurrence: NL)
  Receive Date: 20190417
  Receipt Date: 20200616
  Transmission Date: 20200713
  Serious: Yes (Death, Hospitalization)
  Sender: FDA-Public Use
  Company Number: NL-EISAI MEDICAL RESEARCH-EC-2019-055050

PATIENT
  Age: 57 Year
  Sex: Male
  Weight: 77 kg

DRUGS (13)
  1. CALCIUM CARB/COLECALE [Concomitant]
  2. LENVATINIB [Suspect]
     Active Substance: LENVATINIB
     Route: 048
     Dates: start: 20190606, end: 20190611
  3. LENVATINIB [Suspect]
     Active Substance: LENVATINIB
     Route: 048
     Dates: start: 20190627, end: 20190711
  4. PEMBROLIZUMAB. [Suspect]
     Active Substance: PEMBROLIZUMAB
     Indication: RENAL CELL CARCINOMA
     Route: 041
     Dates: start: 20190222, end: 20190410
  5. PEMBROLIZUMAB. [Suspect]
     Active Substance: PEMBROLIZUMAB
     Route: 041
     Dates: start: 20190517, end: 20190517
  6. PREDNISOLONE. [Concomitant]
     Active Substance: PREDNISOLONE
  7. OXAZEPAM. [Concomitant]
     Active Substance: OXAZEPAM
  8. PANCREATINE [Concomitant]
  9. AMLODIPINE [Concomitant]
     Active Substance: AMLODIPINE BESYLATE
  10. LENVATINIB [Suspect]
     Active Substance: LENVATINIB
     Indication: RENAL CELL CARCINOMA
     Route: 048
     Dates: start: 20190222, end: 20190408
  11. LENVATINIB [Suspect]
     Active Substance: LENVATINIB
     Route: 048
     Dates: start: 20190425, end: 20190522
  12. SIMVASTATIN. [Concomitant]
     Active Substance: SIMVASTATIN
  13. LOPERAMIDE [Concomitant]
     Active Substance: LOPERAMIDE

REACTIONS (4)
  - Diarrhoea [Recovered/Resolved]
  - Gastrointestinal haemorrhage [Recovered/Resolved]
  - Malignant neoplasm progression [Fatal]
  - Colonic abscess [Recovered/Resolved]

NARRATIVE: CASE EVENT DATE: 20190410
